FAERS Safety Report 8255647-1 (Version None)
Quarter: 2012Q2

REPORT INFORMATION
  Report Type: 
  Country: None (occurrence: None)
  Receive Date: 20120403
  Receipt Date: 20120327
  Transmission Date: 20120825
  Serious: Yes (Other)
  Sender: FDA-Public Use
  Company Number: PHEH2012US006755

PATIENT

DRUGS (2)
  1. DIOVAN [Suspect]
     Indication: BLOOD PRESSURE
  2. DIOVAN [Suspect]
     Indication: RENAL DISORDER

REACTIONS (1)
  - DIABETES MELLITUS [None]
